FAERS Safety Report 23526201 (Version 2)
Quarter: 2024Q1

REPORT INFORMATION
  Report Type: Report from Study
  Country: CA (occurrence: CA)
  Receive Date: 20240215
  Receipt Date: 20240318
  Transmission Date: 20240410
  Serious: Yes (Other)
  Sender: FDA-Public Use
  Company Number: CA-Vifor (International) Inc.-VIT-2024-01256

PATIENT
  Age: 74 Year
  Sex: Male
  Weight: 76 kg

DRUGS (16)
  1. VELPHORO [Suspect]
     Active Substance: SUCROFERRIC OXYHYDROXIDE
     Indication: Blood phosphorus abnormal
     Dosage: 1 TABLET BREAKFAST AND LUNCH, AND 2 TABLETS SUPPER
     Route: 048
     Dates: start: 20220122, end: 20240206
  2. KAYEXALATE [Concomitant]
     Active Substance: SODIUM POLYSTYRENE SULFONATE
     Dosage: AS NEEDED. TAKE ONLY IF DIRECTED BY DIALYSIS UNIT FOR EMERGENCY OR MISSED DIALYSIS
     Route: 048
     Dates: start: 20200319
  3. FERRLECIT [Concomitant]
     Active Substance: SODIUM FERRIC GLUCONATE COMPLEX
     Route: 042
     Dates: start: 20191226, end: 20230718
  4. IPREX [Concomitant]
  5. NORVASC [Concomitant]
     Active Substance: AMLODIPINE BESYLATE
     Route: 048
     Dates: start: 20221129
  6. ATORVASTATIN CALCIUM [Concomitant]
     Active Substance: ATORVASTATIN CALCIUM
     Route: 048
     Dates: start: 20221213
  7. BISOPROLOL FUMARATE [Concomitant]
     Active Substance: BISOPROLOL FUMARATE
     Route: 048
     Dates: start: 20230502
  8. CALCITRIOL [Concomitant]
     Active Substance: CALCITRIOL
     Dosage: ON TUESDAY/THURSDAY/SATURDAY
     Route: 048
     Dates: start: 20231031
  9. SENNOSIDES [Concomitant]
     Active Substance: SENNOSIDES
     Dosage: AT BEDTIME
     Route: 048
     Dates: start: 20220113
  10. EPREX [Concomitant]
     Active Substance: ERYTHROPOIETIN
     Indication: Dialysis
     Dosage: DURING HAEMODIALYSIS
     Dates: start: 20191226
  11. EPREX [Concomitant]
     Active Substance: ERYTHROPOIETIN
     Dosage: DURING HAEMODIALYSIS
     Route: 058
     Dates: start: 20231121
  12. ASPIRIN [Concomitant]
     Active Substance: ASPIRIN
     Dosage: AT BEDTIME
     Route: 048
     Dates: start: 20220117
  13. JAMP-CALCIUM [Concomitant]
     Dosage: WITH MEALS.
     Route: 048
     Dates: start: 20240227
  14. SENSIPAR [Concomitant]
     Active Substance: CINACALCET HYDROCHLORIDE
     Route: 048
     Dates: start: 20240215
  15. LACTULOSE [Concomitant]
     Active Substance: LACTULOSE
     Indication: Constipation
     Dosage: 15-30 MG/ML AT BEDTIME AS NEEDED
     Route: 048
     Dates: start: 20210630
  16. NITROGLYCERIN [Concomitant]
     Active Substance: NITROGLYCERIN
     Indication: Chest pain
     Route: 060
     Dates: start: 20220323

REACTIONS (2)
  - Serum ferritin increased [Not Recovered/Not Resolved]
  - Blood parathyroid hormone increased [Unknown]

NARRATIVE: CASE EVENT DATE: 20230701
